FAERS Safety Report 23782150 (Version 3)
Quarter: 2024Q2

REPORT INFORMATION
  Report Type: Spontaneous
  Country: GB (occurrence: None)
  Receive Date: 20240425
  Receipt Date: 20240515
  Transmission Date: 20240715
  Serious: Yes (Death, Other)
  Sender: FDA-Public Use
  Company Number: GB-ROCHE-3548500

PATIENT
  Age: 61 Year
  Sex: Female

DRUGS (1)
  1. ATEZOLIZUMAB [Suspect]
     Active Substance: ATEZOLIZUMAB
     Indication: Small cell lung cancer
     Route: 058
     Dates: start: 20240327

REACTIONS (4)
  - Small cell lung cancer metastatic [Fatal]
  - Malaise [Unknown]
  - Disease progression [Unknown]
  - Hypoxia [Unknown]
